FAERS Safety Report 9997683 (Version 1)
Quarter: 2014Q1

REPORT INFORMATION
  Report Type: Spontaneous
  Country: US (occurrence: US)
  Receive Date: 20140311
  Receipt Date: 20140311
  Transmission Date: 20141002
  Serious: Yes (Other)
  Sender: FDA-Public Use
  Company Number: US-PFIZER INC-2014067382

PATIENT
  Age: 61 Year
  Sex: Male
  Weight: 62.13 kg

DRUGS (1)
  1. DILANTIN [Suspect]
     Indication: CONVULSION
     Dosage: 400 MG, 1X/DAY
     Route: 048

REACTIONS (4)
  - Bone density decreased [Unknown]
  - Weight decreased [Unknown]
  - Ligament rupture [Unknown]
  - Muscle atrophy [Unknown]
